FAERS Safety Report 24804884 (Version 1)
Quarter: 2025Q1

REPORT INFORMATION
  Report Type: Spontaneous
  Country: US (occurrence: US)
  Receive Date: 20250103
  Receipt Date: 20250103
  Transmission Date: 20250409
  Serious: No
  Sender: MYLAN
  Company Number: US-MYLANLABS-2024M1116063

PATIENT
  Age: 78 Year
  Sex: Female
  Weight: 94.8 kg

DRUGS (3)
  1. FENTANYL TRANSDERMAL SYSTEM [Suspect]
     Active Substance: FENTANYL
     Indication: Arachnoiditis
     Dosage: 100 MICROGRAM, QH (PER HOUR, ONE PATCH EVERY 3 DAYS)
     Route: 062
     Dates: start: 2019
  2. FENTANYL TRANSDERMAL SYSTEM [Suspect]
     Active Substance: FENTANYL
     Indication: Back pain
     Dosage: 100 MICROGRAM, QH (PER HOUR, ONE PATCH EVERY 2 DAYS)
     Route: 062
     Dates: start: 20241221
  3. FENTANYL TRANSDERMAL SYSTEM [Suspect]
     Active Substance: FENTANYL
     Indication: Arthritis

REACTIONS (4)
  - Pain in extremity [Recovering/Resolving]
  - Bone pain [Recovering/Resolving]
  - Tremor [Recovered/Resolved]
  - Hyperhidrosis [Recovered/Resolved]

NARRATIVE: CASE EVENT DATE: 20241221
